FAERS Safety Report 25407534 (Version 1)
Quarter: 2025Q2

REPORT INFORMATION
  Report Type: Spontaneous
  Country: NO (occurrence: NO)
  Receive Date: 20250606
  Receipt Date: 20250606
  Transmission Date: 20250716
  Serious: Yes (Disabling)
  Sender: ORGANON
  Company Number: None

PATIENT
  Age: 32 Year
  Sex: Female

DRUGS (2)
  1. NEXPLANON [Suspect]
     Active Substance: ETONOGESTREL
     Route: 058
     Dates: start: 2017, end: 2021
  2. DEPO-PROVERA [Suspect]
     Active Substance: MEDROXYPROGESTERONE ACETATE
     Route: 030
     Dates: start: 20221109, end: 20230417

REACTIONS (20)
  - Infertility [Not Recovered/Not Resolved]
  - Fatigue [Unknown]
  - Asthenia [Unknown]
  - Depression [Unknown]
  - Disturbance in attention [Unknown]
  - Anovulatory cycle [Unknown]
  - Vaginal discharge [Unknown]
  - Menstruation irregular [Unknown]
  - Peripheral coldness [Unknown]
  - Acne [Unknown]
  - Dry skin [Unknown]
  - Alopecia [Unknown]
  - Abdominal distension [Unknown]
  - Gastrointestinal disorder [Unknown]
  - Weight increased [Unknown]
  - Sleep disorder [Unknown]
  - Affect lability [Unknown]
  - Sensory processing sensitivity [Unknown]
  - Cervical dysplasia [Unknown]
  - Incorrect product administration duration [Unknown]

NARRATIVE: CASE EVENT DATE: 20200101
